FAERS Safety Report 19419746 (Version 2)
Quarter: 2021Q4

REPORT INFORMATION
  Report Type: Spontaneous
  Country: CA (occurrence: CA)
  Receive Date: 20210616
  Receipt Date: 20211123
  Transmission Date: 20220304
  Serious: Yes (Hospitalization, Other)
  Sender: FDA-Public Use
  Company Number: CA-JNJFOC-20210334588

PATIENT
  Age: 24 Year
  Sex: Female
  Weight: 55 kg

DRUGS (19)
  1. REMICADE [Suspect]
     Active Substance: INFLIXIMAB
     Indication: Crohn^s disease
     Route: 042
  2. REMICADE [Suspect]
     Active Substance: INFLIXIMAB
     Route: 042
  3. MERCAPTOPURINE [Concomitant]
     Active Substance: MERCAPTOPURINE
     Route: 048
  4. PREDNISONE [Concomitant]
     Active Substance: PREDNISONE
     Route: 048
  5. DIPHENHYDRAMINE [Concomitant]
     Active Substance: DIPHENHYDRAMINE
     Indication: Premedication
     Route: 042
  6. BETA CAROTENE [Concomitant]
     Active Substance: BETA CAROTENE
     Indication: Product used for unknown indication
  7. CALCIUM SULFATE [Concomitant]
     Active Substance: CALCIUM SULFATE
     Indication: Product used for unknown indication
  8. .ALPHA.-TOCOPHEROL ACETATE, D- [Concomitant]
     Active Substance: .ALPHA.-TOCOPHEROL ACETATE, D-
     Indication: Product used for unknown indication
  9. FERROUS FUMARATE [Concomitant]
     Active Substance: FERROUS FUMARATE
     Indication: Product used for unknown indication
  10. FOLIC ACID [Concomitant]
     Active Substance: FOLIC ACID
     Indication: Product used for unknown indication
  11. NICOTINAMIDE [Concomitant]
     Active Substance: NIACINAMIDE
     Indication: Product used for unknown indication
  12. PYRIDOXINE HYDROCHLORIDE [Concomitant]
     Active Substance: PYRIDOXINE HYDROCHLORIDE
     Indication: Product used for unknown indication
  13. RIBOFLAVIN [Concomitant]
     Active Substance: RIBOFLAVIN
     Indication: Product used for unknown indication
  14. THIAMINE MONONITRATE [Concomitant]
     Active Substance: THIAMINE MONONITRATE
     Indication: Product used for unknown indication
  15. RETINOL ACETATE [Concomitant]
     Indication: Product used for unknown indication
  16. VITAMIN B12 [Concomitant]
     Active Substance: CYANOCOBALAMIN
     Indication: Product used for unknown indication
  17. ASCORBIC ACID [Concomitant]
     Active Substance: ASCORBIC ACID
     Indication: Product used for unknown indication
  18. VITAMIN D3 [Concomitant]
     Active Substance: CHOLECALCIFEROL
     Indication: Product used for unknown indication
  19. ZINC OXIDE [Concomitant]
     Active Substance: ZINC OXIDE
     Indication: Product used for unknown indication

REACTIONS (41)
  - Gastrointestinal disorder [Unknown]
  - Malaise [Unknown]
  - Maternal exposure during pregnancy [Recovered/Resolved]
  - Weight increased [Unknown]
  - Fear of injection [Recovered/Resolved]
  - Heart rate irregular [Recovered/Resolved]
  - Nasopharyngitis [Recovered/Resolved]
  - Weight decreased [Recovered/Resolved]
  - COVID-19 [Recovered/Resolved]
  - Vomiting [Unknown]
  - Rash [Recovered/Resolved]
  - Influenza [Recovered/Resolved]
  - Abdominal pain [Recovered/Resolved]
  - Nausea [Unknown]
  - Blood pressure fluctuation [Recovered/Resolved]
  - Headache [Unknown]
  - Off label use [Recovered/Resolved]
  - Intentional product use issue [Recovered/Resolved]
  - Inappropriate schedule of product administration [Recovered/Resolved]
  - Incorrect dose administered [Recovered/Resolved]
  - Feeling abnormal [Not Recovered/Not Resolved]
  - Sinusitis [Not Recovered/Not Resolved]
  - Abdominal distension [Not Recovered/Not Resolved]
  - Anxiety [Not Recovered/Not Resolved]
  - Epigastric discomfort [Not Recovered/Not Resolved]
  - Heart rate increased [Not Recovered/Not Resolved]
  - Inflammation [Not Recovered/Not Resolved]
  - Memory impairment [Not Recovered/Not Resolved]
  - Poor venous access [Unknown]
  - Oral mucosal eruption [Not Recovered/Not Resolved]
  - Oropharyngeal pain [Not Recovered/Not Resolved]
  - Panic attack [Not Recovered/Not Resolved]
  - Cough [Not Recovered/Not Resolved]
  - Rash erythematous [Not Recovered/Not Resolved]
  - Abdominal pain upper [Not Recovered/Not Resolved]
  - Rash pruritic [Not Recovered/Not Resolved]
  - Condition aggravated [Not Recovered/Not Resolved]
  - Tooth infection [Not Recovered/Not Resolved]
  - Lymphadenopathy [Not Recovered/Not Resolved]
  - Fatigue [Not Recovered/Not Resolved]
  - Drug level decreased [Not Recovered/Not Resolved]
